FAERS Safety Report 5887851-1 (Version None)
Quarter: 2008Q3

REPORT INFORMATION
  Report Type: 
  Country: None (occurrence: None)
  Receive Date: 20080916
  Receipt Date: 20080902
  Transmission Date: 20090109
  Serious: Yes (Other)
  Sender: FDA-Public Use
  Company Number: 430066J08USA

PATIENT
  Age: 51 Year
  Sex: Female

DRUGS (4)
  1. NOVANTRONE [Suspect]
     Indication: MULTIPLE SCLEROSIS
     Dates: end: 20080101
  2. TYLENOL (COTYLENOL) [Concomitant]
  3. LEXAPRO [Concomitant]
  4. IMODIUM [Concomitant]

REACTIONS (1)
  - VAGINAL CANCER [None]
